FAERS Safety Report 6924386-9 (Version None)
Quarter: 2010Q3

REPORT INFORMATION
  Report Type: 
  Country: None (occurrence: None)
  Receive Date: 20100809
  Receipt Date: 20100804
  Transmission Date: 20110219
  Serious: Yes (Hospitalization)
  Sender: FDA-Public Use
  Company Number: THYM-1001345

PATIENT
  Age: 73 Year
  Sex: Female
  Weight: 57 kg

DRUGS (11)
  1. THYMOGLOBULIN [Suspect]
     Indication: BONE MARROW CONDITIONING REGIMEN
     Dosage: 130 MG, QD, INTRAVENOUS
     Route: 042
     Dates: start: 20090730, end: 20090730
  2. FLUDARABINE PHOSPHATE [Concomitant]
  3. BUSULFAN (BUSULFAN) [Concomitant]
  4. METHYLPREDNISOLONE [Concomitant]
  5. MICAFUNGIN SODIUM (MICAFUNGIN SODIUM) [Concomitant]
  6. VALPROATE SODIUM [Concomitant]
  7. ACICLOVIR (ACICLOVIR SODIUM) [Concomitant]
  8. SULFAMETOXAZOL MED TRIMETHOPRIM (SULFAMETOXAZOLE, TRIMETHOPRIM) [Concomitant]
  9. CEFEPIME HYDROCHLORIDE [Concomitant]
  10. ITRACONAZOLE [Concomitant]
  11. IMMUNOGLOBULIN HUMAN (IMMUNOGLOBULIN HUMAN NORMAL) [Concomitant]

REACTIONS (1)
  - ENGRAFT FAILURE [None]
